FAERS Safety Report 23707891 (Version 2)
Quarter: 2024Q2

REPORT INFORMATION
  Report Type: Spontaneous
  Country: US (occurrence: US)
  Receive Date: 20240404
  Receipt Date: 20240418
  Transmission Date: 20240716
  Serious: Yes (Hospitalization, Other)
  Sender: FDA-Public Use
  Company Number: US-BRISTOL-MYERS SQUIBB COMPANY-2024-050708

PATIENT
  Age: 52 Year
  Sex: Female

DRUGS (5)
  1. SPRYCEL [Suspect]
     Active Substance: DASATINIB
     Indication: Chronic myeloid leukaemia
     Route: 048
     Dates: start: 20231001
  2. SPRYCEL [Suspect]
     Active Substance: DASATINIB
     Route: 048
     Dates: start: 20231221, end: 20240328
  3. SPRYCEL [Suspect]
     Active Substance: DASATINIB
     Route: 048
  4. ACYCLOVIR [Concomitant]
     Active Substance: ACYCLOVIR
     Indication: Product used for unknown indication
     Route: 048
  5. ONDANSETRON [Concomitant]
     Active Substance: ONDANSETRON
     Indication: Product used for unknown indication
     Dosage: EVERY 6 HOURS PRN
     Route: 048

REACTIONS (14)
  - Sepsis [Unknown]
  - Clostridium difficile infection [Unknown]
  - Tooth abscess [Unknown]
  - Febrile neutropenia [Not Recovered/Not Resolved]
  - Anaemia [Unknown]
  - Drug ineffective [Unknown]
  - Cytopenia [Unknown]
  - Lung infiltration [Unknown]
  - Escherichia infection [Unknown]
  - Diarrhoea [Recovering/Resolving]
  - Fatigue [Unknown]
  - Splenomegaly [Unknown]
  - Hilar lymphadenopathy [Unknown]
  - Chronic myeloid leukaemia [Unknown]

NARRATIVE: CASE EVENT DATE: 20240103
